FAERS Safety Report 12605628 (Version 1)
Quarter: 2016Q3

REPORT INFORMATION
  Report Type: Report from Study
  Country: US (occurrence: US)
  Receive Date: 20160729
  Receipt Date: 20160729
  Transmission Date: 20161109
  Serious: Yes (Other)
  Sender: FDA-Public Use
  Company Number: US-AMGEN-USASL2016096615

PATIENT
  Age: 63 Year
  Sex: Male

DRUGS (2)
  1. ENBREL [Suspect]
     Active Substance: ETANERCEPT
     Indication: RHEUMATOID ARTHRITIS
     Dosage: 50 MG, UNK
     Route: 065
     Dates: start: 20130412
  2. MORPHINE [Concomitant]
     Active Substance: MORPHINE
     Dosage: UNK

REACTIONS (8)
  - Sleep disorder due to general medical condition, insomnia type [Unknown]
  - Spinal osteoarthritis [Unknown]
  - Polyarthritis [Unknown]
  - Pain [Unknown]
  - Fibromyalgia [Unknown]
  - Skin disorder [Unknown]
  - Osteoarthritis [Unknown]
  - Malaise [Unknown]
